FAERS Safety Report 9449639 (Version 1)
Quarter: 2013Q3

REPORT INFORMATION
  Report Type: Spontaneous
  Country: US (occurrence: US)
  Receive Date: 20130809
  Receipt Date: 20130809
  Transmission Date: 20140515
  Serious: No
  Sender: FDA-Public Use
  Company Number: US-PFIZER INC-2013229749

PATIENT
  Age: 84 Year
  Sex: Male
  Weight: 83.9 kg

DRUGS (1)
  1. ADVIL [Suspect]
     Dosage: UNK
     Route: 048
     Dates: start: 20130806

REACTIONS (1)
  - Foreign body [Unknown]
